FAERS Safety Report 8533245-X (Version None)
Quarter: 2012Q3

REPORT INFORMATION
  Report Type: 
  Country: None (occurrence: None)
  Receive Date: 20120724
  Receipt Date: 20120718
  Transmission Date: 20120928
  Serious: Yes (Other)
  Sender: FDA-Public Use
  Company Number: US-PFIZER INC-2012174125

PATIENT
  Sex: Female
  Weight: 82 kg

DRUGS (6)
  1. CLONAZEPAM [Concomitant]
     Dosage: UNK
  2. LEXAPRO [Concomitant]
     Dosage: UNK
  3. BENTYL [Concomitant]
  4. MULTI-VITAMINS [Concomitant]
  5. PREMARIN [Suspect]
     Indication: MENOPAUSE
     Dosage: 0.45 MG, 1X/DAY
     Route: 048
     Dates: start: 20090101
  6. OMEPRAZOLE [Concomitant]
     Dosage: UNK

REACTIONS (3)
  - RASH [None]
  - LOW DENSITY LIPOPROTEIN INCREASED [None]
  - COELIAC DISEASE [None]
